FAERS Safety Report 6543635-2 (Version None)
Quarter: 2010Q1

REPORT INFORMATION
  Report Type: 
  Country: None (occurrence: None)
  Receive Date: 20100119
  Receipt Date: 20100119
  Transmission Date: 20100710
  Serious: Yes (Other)
  Sender: FDA-Public Use
  Company Number: None

PATIENT
  Age: 47 Year
  Sex: Female
  Weight: 90.9 kg

DRUGS (2)
  1. TYLENOL (CAPLET) [Suspect]
     Indication: ARTHRALGIA
     Dosage: 650 MG 1X/DAY AT NIGHT ORAL
     Route: 048
     Dates: start: 20100112, end: 20100116
  2. TYLENOL (CAPLET) [Suspect]
     Indication: MUSCLE SPASMS
     Dosage: 650 MG 1X/DAY AT NIGHT ORAL
     Route: 048
     Dates: start: 20100112, end: 20100116

REACTIONS (3)
  - ABDOMINAL PAIN UPPER [None]
  - DIARRHOEA [None]
  - NAUSEA [None]
